FAERS Safety Report 9901428 (Version 2)
Quarter: 2014Q1

REPORT INFORMATION
  Report Type: Spontaneous
  Country: US (occurrence: US)
  Receive Date: 20140217
  Receipt Date: 20140217
  Transmission Date: 20141002
  Serious: Yes (Death)
  Sender: FDA-Public Use
  Company Number: US-PFIZER INC-2014015813

PATIENT
  Age: 66 Year
  Sex: Female

DRUGS (10)
  1. LYRICA [Suspect]
     Dosage: 300MG QAM AND 150MG PM
  2. NORVASC [Suspect]
     Dosage: UNK
  3. NAPROSYN [Concomitant]
     Dosage: UNK
  4. PREDNISONE [Concomitant]
     Dosage: UNK
  5. SULFASALAZINE [Concomitant]
     Dosage: UNK
  6. LORTAB [Concomitant]
     Dosage: UNK
  7. PRAVASTATIN [Concomitant]
     Dosage: UNK
  8. IRON [Concomitant]
     Dosage: UNK
  9. TOPROL XL [Concomitant]
     Dosage: UNK
  10. MAXZIDE [Concomitant]
     Dosage: UNK

REACTIONS (1)
  - Death [Fatal]
